FAERS Safety Report 19045076 (Version 1)
Quarter: 2021Q1

REPORT INFORMATION
  Report Type: Spontaneous
  Country: TW (occurrence: TW)
  Receive Date: 20210322
  Receipt Date: 20210322
  Transmission Date: 20210420
  Serious: Yes (Other)
  Sender: FDA-Public Use
  Company Number: TW-VIFOR (INTERNATIONAL) INC.-VIT-2021-02295

PATIENT
  Age: 19 Year
  Sex: Female

DRUGS (3)
  1. VALSARTAN. [Concomitant]
     Active Substance: VALSARTAN
     Dates: start: 20200902, end: 20210105
  2. MIRCERA [Suspect]
     Active Substance: METHOXY POLYETHYLENE GLYCOL-EPOETIN BETA
     Indication: PRODUCT USED FOR UNKNOWN INDICATION
     Route: 058
     Dates: start: 20201007, end: 20210216
  3. NESP [Concomitant]
     Active Substance: DARBEPOETIN ALFA
     Route: 058
     Dates: start: 20210303

REACTIONS (5)
  - Serum ferritin increased [Unknown]
  - Pyrexia [Unknown]
  - Splenomegaly [Unknown]
  - Aplasia pure red cell [Not Recovered/Not Resolved]
  - Haemophagocytic lymphohistiocytosis [Unknown]

NARRATIVE: CASE EVENT DATE: 20201221
